FAERS Safety Report 17106230 (Version 1)
Quarter: 2019Q4

REPORT INFORMATION
  Report Type: Spontaneous
  Country: US (occurrence: US)
  Receive Date: 20191203
  Receipt Date: 20191203
  Transmission Date: 20200122
  Serious: No
  Sender: FDA-Public Use
  Company Number: US-ASTRAZENECA-2019SF58509

PATIENT

DRUGS (1)
  1. ROSUVASTATIN. [Suspect]
     Active Substance: ROSUVASTATIN
     Dosage: 20.0MG UNKNOWN
     Route: 048
     Dates: start: 20190920

REACTIONS (5)
  - Oropharyngeal pain [Unknown]
  - Lymphadenopathy [Unknown]
  - Viral infection [Unknown]
  - Neck pain [Unknown]
  - Musculoskeletal pain [Unknown]
